FAERS Safety Report 9122413 (Version 2)
Quarter: 2013Q1

REPORT INFORMATION
  Report Type: Spontaneous
  Country: IL (occurrence: IL)
  Receive Date: 20130114
  Receipt Date: 20130314
  Transmission Date: 20140127
  Serious: Yes (Hospitalization)
  Sender: FDA-Public Use
  Company Number: IL-SANOFI-AVENTIS-2013SA000963

PATIENT
  Age: 68 Year
  Sex: Female

DRUGS (8)
  1. MULTAQ [Suspect]
     Indication: ATRIAL FLUTTER
     Route: 048
     Dates: start: 201211, end: 20121219
  2. METFORMIN [Concomitant]
  3. VALSARTAN [Concomitant]
  4. LYRICA [Concomitant]
  5. MORFINA MIRO [Concomitant]
  6. COUMADIN [Concomitant]
  7. CLEXANE [Concomitant]
  8. EZETROL [Concomitant]

REACTIONS (2)
  - Atrial fibrillation [Unknown]
  - Drug ineffective [Unknown]
